FAERS Safety Report 7645539-0 (Version None)
Quarter: 2011Q3

REPORT INFORMATION
  Report Type: 
  Country: None (occurrence: None)
  Receive Date: 20110729
  Receipt Date: 20110726
  Transmission Date: 20111222
  Serious: Yes (Death, Other)
  Sender: FDA-Public Use
  Company Number: US-PFIZER INC-2008154599

PATIENT
  Sex: Male
  Weight: 116 kg

DRUGS (7)
  1. SPIRIVA [Concomitant]
     Dosage: UNK
  2. VITAMINS NOS [Concomitant]
     Dosage: UNK
  3. PREDNISONE [Concomitant]
     Dosage: UNK
  4. LASIX [Concomitant]
     Indication: PULMONARY OEDEMA
     Dosage: UNK
  5. ACETYLSALICYLIC ACID [Concomitant]
     Dosage: UNK
  6. REVATIO [Suspect]
     Indication: PULMONARY HYPERTENSION
     Dosage: 20 MG, UNK
     Dates: start: 20080101
  7. OXYGEN [Concomitant]
     Dosage: UNK

REACTIONS (4)
  - DYSPNOEA [None]
  - ASTHENIA [None]
  - DISEASE PROGRESSION [None]
  - ORGAN FAILURE [None]
